FAERS Safety Report 5502203-1 (Version None)
Quarter: 2007Q4

REPORT INFORMATION
  Report Type: 
  Country: None (occurrence: None)
  Receive Date: 20071030
  Receipt Date: 20071023
  Transmission Date: 20080405
  Serious: Yes (Other)
  Sender: FDA-Public Use
  Company Number: CA-ASTRAZENECA-2006UW15168

PATIENT
  Age: 79 Year
  Sex: Female

DRUGS (3)
  1. NEXIUM [Suspect]
     Indication: POLYP
     Route: 048
     Dates: start: 20060101
  2. MUSCLE RELAXANT [Concomitant]
  3. THYROID TAB [Concomitant]

REACTIONS (3)
  - ANAEMIA [None]
  - DIZZINESS [None]
  - RED BLOOD CELL COUNT DECREASED [None]
